FAERS Safety Report 6330930-5 (Version None)
Quarter: 2009Q3

REPORT INFORMATION
  Report Type: 
  Country: None (occurrence: None)
  Receive Date: 20090827
  Receipt Date: 20090818
  Transmission Date: 20100115
  Serious: Yes (Hospitalization, Other)
  Sender: FDA-Public Use
  Company Number: CO-ELI_LILLY_AND_COMPANY-CO200908002485

PATIENT
  Age: 49 Year
  Sex: Female

DRUGS (11)
  1. BYETTA [Suspect]
     Indication: TYPE 2 DIABETES MELLITUS
     Dosage: 10 UG, 2/D
     Route: 058
     Dates: start: 20080606, end: 20090601
  2. BYETTA [Suspect]
     Dosage: 10 UG, 2/D
     Route: 058
     Dates: start: 20090701, end: 20090803
  3. BYETTA [Suspect]
     Dosage: 10 UG, DAILY (1/D)
     Route: 058
     Dates: start: 20090814, end: 20090814
  4. COUMADIN [Concomitant]
     Dosage: 2.5 MG, UNKNOWN
     Route: 065
  5. COUMADIN [Concomitant]
     Dosage: 5 MG, UNKNOWN
     Route: 065
  6. PLAVIX [Concomitant]
     Dosage: UNK, UNKNOWN
     Route: 065
  7. EUTIROX [Concomitant]
     Dosage: UNK, UNKNOWN
     Route: 065
  8. PANTOPRAZOLE SODIUM [Concomitant]
     Dosage: UNK, UNKNOWN
     Route: 065
  9. PREGABALIN [Concomitant]
     Dosage: UNK, UNKNOWN
     Route: 065
  10. CRESTOR [Concomitant]
     Dosage: UNK, UNKNOWN
     Route: 065
  11. FONDAPARINUX [Concomitant]
     Dosage: UNK, UNKNOWN
     Route: 065

REACTIONS (8)
  - ASTHENIA [None]
  - BLOOD ELECTROLYTES DECREASED [None]
  - DIARRHOEA [None]
  - DIARRHOEA HAEMORRHAGIC [None]
  - FEELING ABNORMAL [None]
  - OFF LABEL USE [None]
  - WEIGHT INCREASED [None]
  - WITHDRAWAL SYNDROME [None]
